FAERS Safety Report 5495748-4 (Version None)
Quarter: 2007Q4

REPORT INFORMATION
  Report Type: 
  Country: None (occurrence: None)
  Receive Date: 20071025
  Receipt Date: 20061113
  Transmission Date: 20080405
  Serious: No
  Sender: FDA-Public Use
  Company Number: A0623551A

PATIENT
  Age: 8 Year
  Sex: Female
  Weight: 24.5 kg

DRUGS (5)
  1. ADVAIR DISKUS 100/50 [Suspect]
     Indication: ASTHMA
     Dosage: 1PUFF PER DAY
     Route: 055
     Dates: start: 20060101, end: 20060101
  2. SINGULAIR [Concomitant]
  3. ZANTAC [Concomitant]
  4. PREVACID [Concomitant]
  5. ALBUTEROL [Concomitant]

REACTIONS (3)
  - DIZZINESS [None]
  - MUSCULAR WEAKNESS [None]
  - STOMACH DISCOMFORT [None]
